FAERS Safety Report 5556891-4 (Version None)
Quarter: 2007Q4

REPORT INFORMATION
  Report Type: 
  Country: None (occurrence: None)
  Receive Date: 20071211
  Receipt Date: 20071211
  Transmission Date: 20080405
  Serious: Yes (Other)
  Sender: FDA-Public Use
  Company Number: None

PATIENT
  Age: 26 Year
  Sex: Male
  Weight: 83.9154 kg

DRUGS (1)
  1. CHANTIX [Suspect]
     Indication: SMOKING CESSATION THERAPY
     Dosage: 2MG TWICE A DAY PO
     Route: 048
     Dates: start: 20071010, end: 20071205

REACTIONS (5)
  - ANXIETY [None]
  - PALPITATIONS [None]
  - PANIC ATTACK [None]
  - SLEEP DISORDER [None]
  - WITHDRAWAL SYNDROME [None]
